FAERS Safety Report 14340108 (Version 1)
Quarter: 2017Q4

REPORT INFORMATION
  Report Type: Spontaneous
  Country: US (occurrence: US)
  Receive Date: 20171231
  Receipt Date: 20171231
  Transmission Date: 20180321
  Serious: No
  Sender: FDA-Public Use
  Company Number: US-TEVA-2017-US-833135

PATIENT
  Age: 46 Year
  Sex: Male

DRUGS (2)
  1. PROAIR HFA [Suspect]
     Active Substance: ALBUTEROL SULFATE
     Indication: WHEEZING
  2. PROAIR HFA [Suspect]
     Active Substance: ALBUTEROL SULFATE
     Indication: BRONCHITIS
     Dosage: 8 DOSAGE FORMS DAILY;
     Route: 055
     Dates: end: 20171205

REACTIONS (1)
  - Breath alcohol test positive [Unknown]

NARRATIVE: CASE EVENT DATE: 20171205
